FAERS Safety Report 4440899-6 (Version None)
Quarter: 2004Q3

REPORT INFORMATION
  Report Type: 
  Country: None (occurrence: None)
  Receive Date: 20040728
  Receipt Date: 20040423
  Transmission Date: 20050211
  Serious: No
  Sender: FDA-Public Use
  Company Number: USA040465839

PATIENT
  Age: 8 Year
  Sex: Male
  Weight: 49 kg

DRUGS (1)
  1. STRATTERA [Suspect]
     Indication: ATTENTION DEFICIT/HYPERACTIVITY DISORDER
     Dates: start: 20031220

REACTIONS (4)
  - DECREASED APPETITE [None]
  - DYSGEUSIA [None]
  - STOMACH DISCOMFORT [None]
  - WEIGHT DECREASED [None]
